FAERS Safety Report 7753815-6 (Version None)
Quarter: 2011Q3

REPORT INFORMATION
  Report Type: 
  Country: None (occurrence: None)
  Receive Date: 20110915
  Receipt Date: 20110909
  Transmission Date: 20111222
  Serious: Yes (Hospitalization, Disabling)
  Sender: FDA-Public Use
  Company Number: US-MERCK-1109USA00032

PATIENT
  Age: 83 Year
  Sex: Female

DRUGS (7)
  1. JANUVIA [Suspect]
     Route: 048
     Dates: start: 20090421, end: 20101017
  2. GLYBURIDE [Concomitant]
     Route: 065
  3. ASPIRIN [Concomitant]
     Route: 065
  4. VITAMINS (UNSPECIFIED) [Concomitant]
     Route: 065
  5. LOVASTATIN [Concomitant]
     Route: 065
  6. JANUVIA [Suspect]
     Indication: DIABETES MELLITUS
     Route: 048
     Dates: start: 20101018
  7. VENTOLIN [Concomitant]
     Route: 065

REACTIONS (2)
  - HIP FRACTURE [None]
  - FALL [None]
